FAERS Safety Report 7243923-0 (Version None)
Quarter: 2011Q1

REPORT INFORMATION
  Report Type: 
  Country: None (occurrence: None)
  Receive Date: 20110125
  Receipt Date: 20110114
  Transmission Date: 20110831
  Serious: Yes (Death, Other)
  Sender: FDA-Public Use
  Company Number: B0690562A

PATIENT
  Age: 77 Year
  Sex: Female

DRUGS (2)
  1. CLARITHROMYCIN [Suspect]
     Indication: BRONCHITIS
  2. AMOXICILLIN [Suspect]
     Indication: BRONCHITIS
     Route: 065

REACTIONS (11)
  - PANCREATITIS [None]
  - GENERAL PHYSICAL HEALTH DETERIORATION [None]
  - HEPATITIS [None]
  - DECREASED APPETITE [None]
  - COMA HEPATIC [None]
  - MULTI-ORGAN FAILURE [None]
  - RASH [None]
  - JAUNDICE [None]
  - ABDOMINAL PAIN [None]
  - CHOLESTASIS [None]
  - HYPERSENSITIVITY [None]
